FAERS Safety Report 5808893-8 (Version None)
Quarter: 2008Q3

REPORT INFORMATION
  Report Type: 
  Country: None (occurrence: None)
  Receive Date: 20080714
  Receipt Date: 20080703
  Transmission Date: 20090109
  Serious: Yes (Death, Hospitalization)
  Sender: FDA-Public Use
  Company Number: CM-MERCK-0807USA00710

PATIENT
  Age: 18 Year
  Sex: Male

DRUGS (1)
  1. STROMECTOL [Suspect]
     Indication: ONCHOCERCIASIS
     Route: 048
     Dates: start: 20080627

REACTIONS (7)
  - COMA [None]
  - CONJUNCTIVAL HAEMORRHAGE [None]
  - DEATH [None]
  - DIARRHOEA [None]
  - FAECAL INCONTINENCE [None]
  - PYREXIA [None]
  - VOMITING [None]
